FAERS Safety Report 4546313-4 (Version None)
Quarter: 2005Q1

REPORT INFORMATION
  Report Type: 
  Country: None (occurrence: None)
  Receive Date: 20050103
  Receipt Date: 20041222
  Transmission Date: 20050727
  Serious: Yes (Other)
  Sender: FDA-Public Use
  Company Number: US_0412109054

PATIENT
  Age: 4 Year
  Sex: Female
  Weight: 23 kg

DRUGS (1)
  1. CIALIS [Suspect]
     Indication: ACCIDENTAL OVERDOSE
     Dosage: 20 MG/ONE TIME
     Dates: start: 20041213, end: 20041213

REACTIONS (2)
  - ACCIDENTAL EXPOSURE [None]
  - SALIVARY HYPERSECRETION [None]
